FAERS Safety Report 4450915-3 (Version None)
Quarter: 2004Q3

REPORT INFORMATION
  Report Type: 
  Country: None (occurrence: None)
  Receive Date: 20040916
  Receipt Date: 20020102
  Transmission Date: 20050211
  Serious: Yes (Other)
  Sender: FDA-Public Use
  Company Number: US-BRISTOL-MYERS SQUIBB COMPANY-11826237

PATIENT
  Sex: Female

DRUGS (19)
  1. STADOL [Suspect]
     Route: 045
  2. STADOL [Suspect]
  3. PREMARIN [Concomitant]
  4. ZESTORETIC [Concomitant]
  5. SERAX [Concomitant]
  6. SOMA [Concomitant]
  7. LORCET-HD [Concomitant]
  8. TRILISATE [Concomitant]
  9. TALWIN NX [Concomitant]
  10. CIPRO [Concomitant]
  11. CARISOPRODOL [Concomitant]
  12. LORCET-HD [Concomitant]
  13. AMITRIPTYLINE HCL [Concomitant]
  14. ANUCORT-HC [Concomitant]
  15. HYDROCODONE + ACETAMINOPHEN [Concomitant]
  16. VOLTAREN [Concomitant]
  17. METRONIDAZOLE [Concomitant]
  18. LORTAB [Concomitant]
  19. TRIMOX [Concomitant]

REACTIONS (2)
  - DEPENDENCE [None]
  - DRUG WITHDRAWAL SYNDROME [None]
